FAERS Safety Report 4609632-9 (Version None)
Quarter: 2005Q1

REPORT INFORMATION
  Report Type: 
  Country: None (occurrence: None)
  Receive Date: 20050307
  Receipt Date: 20040913
  Transmission Date: 20050727
  Serious: Yes (Other)
  Sender: FDA-Public Use
  Company Number: 200510218BBE

PATIENT
  Sex: Male

DRUGS (4)
  1. KONYNE [Suspect]
     Indication: FACTOR IX DEFICIENCY
     Dates: start: 19780101, end: 19900101
  2. FACTOR IX COMPLEX [Suspect]
     Dates: start: 19900101
  3. WHOLE BLOOD [Suspect]
  4. PLASMA [Suspect]

REACTIONS (1)
  - HEPATITIS C VIRUS [None]
